FAERS Safety Report 8240929-X (Version None)
Quarter: 2012Q1

REPORT INFORMATION
  Report Type: 
  Country: None (occurrence: None)
  Receive Date: 20120328
  Receipt Date: 20120322
  Transmission Date: 20120608
  Serious: Yes (Hospitalization)
  Sender: FDA-Public Use
  Company Number: US-BAYER-2011-027872

PATIENT
  Age: 24 Year
  Sex: Female

DRUGS (3)
  1. YASMIN [Suspect]
     Indication: CONTRACEPTION
     Dosage: UNK
     Dates: start: 20021004, end: 20021111
  2. YASMIN [Suspect]
     Indication: PREMENSTRUAL SYNDROME
  3. ZOLOFT [Concomitant]
     Dosage: 50 MG, QD
     Route: 048

REACTIONS (8)
  - GENERAL PHYSICAL HEALTH DETERIORATION [None]
  - PULMONARY EMBOLISM [None]
  - CHEST PAIN [None]
  - EMOTIONAL DISTRESS [None]
  - ANXIETY [None]
  - PAIN [None]
  - ANHEDONIA [None]
  - INJURY [None]
